FAERS Safety Report 19021098 (Version 3)
Quarter: 2022Q4

REPORT INFORMATION
  Report Type: Spontaneous
  Country: DE (occurrence: DE)
  Receive Date: 20210317
  Receipt Date: 20221209
  Transmission Date: 20230113
  Serious: Yes (Hospitalization, Other)
  Sender: FDA-Public Use
  Company Number: DE-NOVARTISPH-NVSC2021DE019518

PATIENT
  Sex: Female
  Weight: 83 kg

DRUGS (71)
  1. VALSARTAN [Suspect]
     Active Substance: VALSARTAN
     Indication: Product used for unknown indication
     Dosage: UNK(160/12.5)
     Route: 065
     Dates: start: 20150527
  2. VALSARTAN [Suspect]
     Active Substance: VALSARTAN
     Dosage: UNK (80)
     Route: 065
  3. HYDROCHLOROTHIAZIDE\VALSARTAN [Suspect]
     Active Substance: HYDROCHLOROTHIAZIDE\VALSARTAN
     Indication: Product used for unknown indication
     Dosage: 160 MG, QD (12.5 MG)
     Route: 065
     Dates: start: 20150901, end: 20180320
  4. HYDROCHLOROTHIAZIDE\VALSARTAN [Suspect]
     Active Substance: HYDROCHLOROTHIAZIDE\VALSARTAN
     Dosage: 160 MG, QD (12.5 MG)
     Route: 065
     Dates: start: 201703, end: 201709
  5. HYDROCHLOROTHIAZIDE\VALSARTAN [Suspect]
     Active Substance: HYDROCHLOROTHIAZIDE\VALSARTAN
     Dosage: 160 MG, QD (12.5 MG)
     Route: 065
     Dates: start: 201711, end: 201810
  6. HYDROCHLOROTHIAZIDE\VALSARTAN [Suspect]
     Active Substance: HYDROCHLOROTHIAZIDE\VALSARTAN
     Indication: Product used for unknown indication
     Dosage: 1 DOSAGE FORM, QD (MORNING)
     Route: 065
     Dates: start: 200405
  7. DIOVAN [Suspect]
     Active Substance: VALSARTAN
     Indication: Product used for unknown indication
     Dosage: 1 DOSAGE FORM, QD (80 MG) (EVENING)
     Route: 065
     Dates: start: 200103
  8. HYDROCHLOROTHIAZIDE\VALSARTAN [Suspect]
     Active Substance: HYDROCHLOROTHIAZIDE\VALSARTAN
     Indication: Product used for unknown indication
     Dosage: 1 DOSAGE FORM, QD (MORNING)
     Route: 065
     Dates: start: 200009, end: 200104
  9. HYDROCHLOROTHIAZIDE\VALSARTAN [Suspect]
     Active Substance: HYDROCHLOROTHIAZIDE\VALSARTAN
     Dosage: 1 DOSAGE FORM, BID
     Route: 065
     Dates: start: 200104, end: 200106
  10. HYDROCHLOROTHIAZIDE\VALSARTAN [Suspect]
     Active Substance: HYDROCHLOROTHIAZIDE\VALSARTAN
     Dosage: 1 DOSAGE FORM, QD (MORNING)
     Route: 065
     Dates: start: 200106, end: 200405
  11. HYDROCHLOROTHIAZIDE\VALSARTAN [Suspect]
     Active Substance: HYDROCHLOROTHIAZIDE\VALSARTAN
     Indication: Product used for unknown indication
     Dosage: 1 DOSAGE FORM, QD (80/12.5) (MORNING)
     Route: 065
     Dates: start: 201112, end: 201406
  12. HYDROCHLOROTHIAZIDE\VALSARTAN [Suspect]
     Active Substance: HYDROCHLOROTHIAZIDE\VALSARTAN
     Dosage: 1 DOSAGE FORM, QD (160/12.5) (MORNING)
     Route: 065
     Dates: start: 201407
  13. AMLODIPIN HEXAL [Concomitant]
     Indication: Product used for unknown indication
     Dosage: 5 MG, QD
     Route: 065
  14. AMLODIPINE BESYLATE [Concomitant]
     Active Substance: AMLODIPINE BESYLATE
     Indication: Product used for unknown indication
     Dosage: 5 MG, QD
     Route: 065
  15. AMLODIPINE BESYLATE [Concomitant]
     Active Substance: AMLODIPINE BESYLATE
     Dosage: UNK MG, BID (1/2 5 MG)
     Route: 065
  16. AMLODIPINE BESYLATE [Concomitant]
     Active Substance: AMLODIPINE BESYLATE
     Dosage: 5 MG, QD
     Route: 065
  17. METAMIZOLE [Concomitant]
     Active Substance: METAMIZOLE
     Indication: Product used for unknown indication
     Dosage: 500 MG AS NEEDED (UP TO 2 TABLETS 4TIMES PER DAY)
     Route: 065
  18. PANTOPRAZOLE [Concomitant]
     Active Substance: PANTOPRAZOLE
     Indication: Product used for unknown indication
     Dosage: 40 MG, QD
     Route: 065
  19. PRADAXA [Concomitant]
     Active Substance: DABIGATRAN ETEXILATE MESYLATE
     Indication: Product used for unknown indication
     Dosage: 150 MG, BID (ONE CAPSULE TWICE DAILY)
     Route: 065
     Dates: start: 201307
  20. PRADAXA [Concomitant]
     Active Substance: DABIGATRAN ETEXILATE MESYLATE
     Dosage: 150 MG, BID (ONE CAPSULE TWICE DAILY)
     Route: 065
     Dates: end: 201910
  21. PRADAXA [Concomitant]
     Active Substance: DABIGATRAN ETEXILATE MESYLATE
     Dosage: 150 MG, BID (ONE CAPSULE TWICE DAILY)
     Route: 065
     Dates: start: 20191026
  22. CANDESARTAN [Concomitant]
     Active Substance: CANDESARTAN
     Indication: Product used for unknown indication
     Dosage: 16 MG, QD
     Route: 065
  23. GRANUFINK [Concomitant]
     Indication: Product used for unknown indication
     Dosage: UNK
     Route: 065
  24. TORSEMIDE [Concomitant]
     Active Substance: TORSEMIDE
     Indication: Product used for unknown indication
     Dosage: 5 MG, QD
     Route: 065
  25. TORSEMIDE [Concomitant]
     Active Substance: TORSEMIDE
     Indication: Product used for unknown indication
     Dosage: 10 MG, QD
     Route: 065
  26. CANDESARTAN CILEXETIL [Concomitant]
     Active Substance: CANDESARTAN CILEXETIL
     Indication: Product used for unknown indication
     Dosage: 16 MG, QD
     Route: 065
  27. AMLODIPINE [Concomitant]
     Active Substance: AMLODIPINE BESYLATE
     Indication: Product used for unknown indication
     Dosage: 5 MG, BID
     Route: 065
  28. ABOMIN [Concomitant]
     Indication: Asthma
     Dosage: 5 UNK, TID (5 GTT)
     Route: 065
  29. DERIVATIO H [Concomitant]
     Indication: Asthma
     Dosage: 2 DF, TID
     Route: 065
  30. HYDROCHLOROTHIAZIDE\VALSARTAN [Concomitant]
     Active Substance: HYDROCHLOROTHIAZIDE\VALSARTAN
     Indication: Product used for unknown indication
     Dosage: UNK
     Route: 065
  31. VERAPAMIL [Concomitant]
     Active Substance: VERAPAMIL HYDROCHLORIDE
     Indication: Product used for unknown indication
     Dosage: 80 MG, QD
     Route: 065
     Dates: start: 201112
  32. ASPIRIN [Concomitant]
     Active Substance: ASPIRIN
     Indication: Product used for unknown indication
     Dosage: 100 MG, QD
     Route: 065
     Dates: start: 200504
  33. FALICARD [Concomitant]
     Indication: Product used for unknown indication
     Dosage: UNK
     Route: 065
     Dates: end: 2001
  34. FALICARD [Concomitant]
     Dosage: 80 MG, TID
     Route: 065
     Dates: start: 2001
  35. METOPROLOL SUCCINATE [Concomitant]
     Active Substance: METOPROLOL SUCCINATE
     Indication: Product used for unknown indication
     Dosage: 1 DF, QD
     Route: 065
     Dates: end: 199604
  36. METOPROLOL SUCCINATE [Concomitant]
     Active Substance: METOPROLOL SUCCINATE
     Dosage: 0.5 DF, BID
     Route: 065
     Dates: start: 199604
  37. GINKGO [Concomitant]
     Active Substance: GINKGO
     Indication: Product used for unknown indication
     Dosage: 1 DOSAGE FORM, BID
     Route: 065
  38. LOPERAMIDE [Concomitant]
     Active Substance: LOPERAMIDE
     Indication: Product used for unknown indication
     Dosage: UNK
     Route: 065
  39. ESTRADERM [Concomitant]
     Active Substance: ESTRADIOL
     Indication: Product used for unknown indication
     Dosage: 50 UNK
     Route: 065
  40. DIMETHINDENE [Concomitant]
     Active Substance: DIMETHINDENE
     Indication: Pruritus
     Dosage: UNK
     Route: 065
  41. TRIMIPRAMINE MALEATE [Concomitant]
     Active Substance: TRIMIPRAMINE MALEATE
     Indication: Product used for unknown indication
     Route: 065
  42. ECHINACIN [Concomitant]
     Active Substance: ECHINACIN
     Indication: Oropharyngeal pain
     Dosage: UNK
     Route: 065
  43. ECHINACIN [Concomitant]
     Active Substance: ECHINACIN
     Indication: Pharyngitis
  44. VENOBIASE [Concomitant]
     Indication: Product used for unknown indication
     Dosage: 1 DF, QD
     Route: 065
  45. ESIDRIX [Concomitant]
     Active Substance: HYDROCHLOROTHIAZIDE
     Indication: Product used for unknown indication
     Dosage: 0.5 DF, QD
     Route: 065
  46. HEPARIN [Concomitant]
     Active Substance: HEPARIN SODIUM
     Indication: Product used for unknown indication
     Dosage: UNK
     Route: 065
  47. IBUPROFEN SODIUM [Concomitant]
     Active Substance: IBUPROFEN SODIUM
     Indication: Product used for unknown indication
     Dosage: UNK
     Route: 065
     Dates: start: 199712
  48. HAMETUM [Concomitant]
     Indication: Product used for unknown indication
     Dosage: UNK
     Route: 065
     Dates: start: 199712
  49. BIOSEDON S [Concomitant]
     Indication: Product used for unknown indication
     Dosage: 1 DF, QD
     Route: 065
     Dates: start: 199803
  50. FELIS [Concomitant]
     Indication: Product used for unknown indication
     Dosage: UNK (DROPS)
     Route: 065
     Dates: start: 199803
  51. TORSEMIDE [Concomitant]
     Active Substance: TORSEMIDE
     Indication: Product used for unknown indication
     Dosage: 5 DF, QD
     Route: 065
     Dates: start: 199810
  52. TORSEMIDE [Concomitant]
     Active Substance: TORSEMIDE
     Dosage: 10 DF, QD
     Route: 065
     Dates: start: 199903, end: 199910
  53. TORSEMIDE [Concomitant]
     Active Substance: TORSEMIDE
     Dosage: 5 DF, QD
     Route: 065
     Dates: start: 199910
  54. METOPROLOL SUCCINATE [Concomitant]
     Active Substance: METOPROLOL SUCCINATE
     Indication: Product used for unknown indication
     Dosage: 1 DF, BID
     Route: 065
     Dates: start: 199902, end: 200108
  55. MICARDIS [Concomitant]
     Active Substance: TELMISARTAN
     Indication: Product used for unknown indication
     Dosage: 40 DF
     Route: 065
     Dates: start: 199902
  56. GINKGO [Concomitant]
     Active Substance: GINKGO
     Indication: Tinnitus
     Dosage: 80 DF (SPEZIAL 80)
     Route: 065
     Dates: start: 199903
  57. DIETARY SUPPLEMENT\HERBALS [Concomitant]
     Active Substance: DIETARY SUPPLEMENT\HERBALS
     Indication: Oropharyngeal pain
     Dosage: UNK
     Route: 065
     Dates: start: 199911
  58. TARGESIN [Concomitant]
     Indication: Product used for unknown indication
     Dosage: UNK
     Route: 065
  59. ALBUTEROL [Concomitant]
     Active Substance: ALBUTEROL
     Indication: Product used for unknown indication
     Dosage: UNK (SPRAY)
     Route: 065
     Dates: start: 200007
  60. MOMETASONE [Concomitant]
     Active Substance: MOMETASONE
     Indication: Product used for unknown indication
     Dosage: UNK
     Route: 065
     Dates: start: 200007
  61. COLDASTOP [Concomitant]
     Indication: Product used for unknown indication
     Dosage: UNK (OIL)
     Route: 065
     Dates: start: 200007
  62. ZITHROMAX [Concomitant]
     Active Substance: AZITHROMYCIN DIHYDRATE
     Indication: Product used for unknown indication
     Dosage: UNK
     Route: 065
     Dates: start: 200008
  63. SYMBICORT [Concomitant]
     Active Substance: BUDESONIDE\FORMOTEROL FUMARATE DIHYDRATE
     Indication: Product used for unknown indication
     Dosage: 1 DF, QD
     Route: 065
     Dates: start: 200109
  64. ISOSORBIDE MONONITRATE [Concomitant]
     Active Substance: ISOSORBIDE MONONITRATE
     Indication: Product used for unknown indication
     Dosage: UNK (SPRAY)(AS NEEDED)
     Route: 065
     Dates: start: 200111
  65. ASCORBIC ACID [Concomitant]
     Active Substance: ASCORBIC ACID
     Indication: Product used for unknown indication
     Dosage: UNK
     Route: 065
     Dates: start: 200207
  66. FALICARD [Concomitant]
     Indication: Product used for unknown indication
     Dosage: 140 DF, BID (1/2X 240 )
     Route: 065
     Dates: start: 200212
  67. NITRANGIN [Concomitant]
     Indication: Product used for unknown indication
     Dosage: UNK(SPRAY)(AS NEEDED)
     Route: 065
     Dates: start: 200309
  68. ALLOPURINOL [Concomitant]
     Active Substance: ALLOPURINOL
     Indication: Product used for unknown indication
     Dosage: UNK
     Route: 065
     Dates: start: 200902
  69. VESIKUR [Concomitant]
     Active Substance: SOLIFENACIN SUCCINATE
     Indication: Product used for unknown indication
     Dosage: 5 MG
     Route: 065
     Dates: start: 201202
  70. SPASMEX [Concomitant]
     Indication: Product used for unknown indication
     Dosage: 5 DF, QD
     Route: 065
     Dates: start: 201701
  71. CORIFEO [Concomitant]
     Indication: Product used for unknown indication
     Dosage: UNK
     Route: 065

REACTIONS (108)
  - Adenocarcinoma [Unknown]
  - Haematochezia [Unknown]
  - Bloody discharge [Unknown]
  - Coronary vein stenosis [Unknown]
  - Obstructive sleep apnoea syndrome [Unknown]
  - Goitre [Unknown]
  - Thyroid adenoma [Unknown]
  - Coronary artery disease [Unknown]
  - Dyspnoea exertional [Unknown]
  - Disturbance in attention [Unknown]
  - Respiratory failure [Unknown]
  - Right ventricular failure [Unknown]
  - Mitral valve incompetence [Unknown]
  - Hypothyroidism [Unknown]
  - Proctitis [Unknown]
  - Intussusception [Unknown]
  - Intestinal haemorrhage [Recovered/Resolved]
  - Single atrium [Unknown]
  - Tricuspid valve disease [Unknown]
  - Aortic valve incompetence [Unknown]
  - Pulmonary valve incompetence [Unknown]
  - Cardiac failure chronic [Unknown]
  - Myosclerosis [Unknown]
  - Renal failure [Unknown]
  - Skin cancer [Unknown]
  - Polyneuropathy [Unknown]
  - Arrhythmia [Unknown]
  - Cerebral ischaemia [Unknown]
  - Angina pectoris [Unknown]
  - Arteriosclerosis coronary artery [Unknown]
  - Gastrointestinal ulcer [Unknown]
  - Rash macular [Not Recovered/Not Resolved]
  - Hypersensitivity [Unknown]
  - Hyperuricaemia [Unknown]
  - Haemorrhoids [Unknown]
  - Urinary incontinence [Unknown]
  - Spinal osteoarthritis [Unknown]
  - Renal cyst [Unknown]
  - Hypocalcaemia [Unknown]
  - Hypertension [Unknown]
  - Dizziness [Unknown]
  - Nausea [Unknown]
  - Vomiting [Unknown]
  - Chest discomfort [Unknown]
  - Restlessness [Unknown]
  - Skin disorder [Not Recovered/Not Resolved]
  - Lichen planus [Unknown]
  - Cutis laxa [Unknown]
  - Seborrhoeic keratosis [Unknown]
  - Hepatitis A [Unknown]
  - Actinic keratosis [Unknown]
  - Melanocytic naevus [Unknown]
  - Xeroderma [Unknown]
  - Haemangioma [Unknown]
  - Haematoma [Unknown]
  - Pain [Recovering/Resolving]
  - Nocturia [Unknown]
  - Chronic obstructive pulmonary disease [Unknown]
  - Hepatic steatosis [Unknown]
  - Infection [Unknown]
  - Cough [Unknown]
  - Productive cough [Unknown]
  - Vasculitis [Unknown]
  - Bone disorder [Unknown]
  - Hypertensive heart disease [Unknown]
  - Cardiomegaly [Unknown]
  - Paroxysmal arrhythmia [Unknown]
  - Palpitations [Recovering/Resolving]
  - Supraventricular tachycardia [Unknown]
  - Ventricular extrasystoles [Unknown]
  - Left ventricular hypertrophy [Unknown]
  - Cardiac disorder [Unknown]
  - Nasopharyngitis [Unknown]
  - Osteoporosis [Unknown]
  - Bronchitis [Unknown]
  - Varicella [Unknown]
  - Stenosis [Unknown]
  - Osteoarthritis [Unknown]
  - Pain in extremity [Unknown]
  - Arthralgia [Unknown]
  - Hypoaesthesia [Unknown]
  - Pharyngeal erythema [Unknown]
  - Hyposmia [Unknown]
  - Oropharyngeal pain [Unknown]
  - Depression [Unknown]
  - Eczema [Unknown]
  - Muscle spasms [Unknown]
  - Thermal burn [Unknown]
  - Plantar fasciitis [Unknown]
  - Thrombophlebitis [Unknown]
  - Occult blood [Unknown]
  - Dysuria [Unknown]
  - Diverticulum [Unknown]
  - Sinusitis [Unknown]
  - Pharyngitis [Unknown]
  - Stomatitis [Unknown]
  - Gingivitis [Unknown]
  - Coccydynia [Unknown]
  - Anaemia [Unknown]
  - Fall [Unknown]
  - Tracheobronchitis [Unknown]
  - Diarrhoea [Unknown]
  - Abdominal pain upper [Unknown]
  - Diverticulum intestinal [Unknown]
  - Gout [Unknown]
  - Pelvic deformity [Unknown]
  - Lung disorder [Unknown]
  - Skin hyperpigmentation [Unknown]

NARRATIVE: CASE EVENT DATE: 20001001
